FAERS Safety Report 6464025-7 (Version None)
Quarter: 2009Q4

REPORT INFORMATION
  Report Type: 
  Country: None (occurrence: None)
  Receive Date: 20091110
  Receipt Date: 20091009
  Transmission Date: 20100525
  Serious: No
  Sender: FDA-Public Use
  Company Number: 1000009397

PATIENT
  Sex: Male

DRUGS (4)
  1. SAVELLA [Suspect]
     Indication: FIBROMYALGIA
     Dosage: 12.5 MG (12.5 MG, 1 IN 1 D), ORAL; 25 MG (12.5 MG, 2 IN 1 ),ORAL; 50 MG (25 MG, 2 IN 1 D),ORAL
     Route: 048
     Dates: start: 20090101, end: 20090101
  2. SAVELLA [Suspect]
     Indication: FIBROMYALGIA
     Dosage: 12.5 MG (12.5 MG, 1 IN 1 D), ORAL; 25 MG (12.5 MG, 2 IN 1 ),ORAL; 50 MG (25 MG, 2 IN 1 D),ORAL
     Route: 048
     Dates: start: 20090101, end: 20090101
  3. SAVELLA [Suspect]
     Indication: FIBROMYALGIA
     Dosage: 12.5 MG (12.5 MG, 1 IN 1 D), ORAL; 25 MG (12.5 MG, 2 IN 1 ),ORAL; 50 MG (25 MG, 2 IN 1 D),ORAL
     Route: 048
     Dates: start: 20090101, end: 20090101
  4. SAVELLA [Suspect]
     Indication: FIBROMYALGIA
     Dosage: 100 MG (50 MG, 2 IN 1 D),ORAL
     Route: 048
     Dates: start: 20090101, end: 20090101

REACTIONS (2)
  - NAUSEA [None]
  - VOMITING [None]
